FAERS Safety Report 7965556-0 (Version None)
Quarter: 2011Q4

REPORT INFORMATION
  Report Type: 
  Country: None (occurrence: None)
  Receive Date: 20111206
  Receipt Date: 20111206
  Transmission Date: 20120403
  Serious: Yes (Hospitalization)
  Sender: FDA-Public Use
  Company Number: None

PATIENT
  Sex: Female
  Weight: 130 kg

DRUGS (6)
  1. CYCLOPHOSPHAMIDE [Suspect]
     Dosage: 4950 MG
  2. VINCRISTINE SULFATE [Suspect]
     Dosage: 2 MG
  3. MERCAPTOPURINE [Suspect]
     Dosage: 3300 MG
  4. CYTARABINE [Suspect]
     Dosage: 2048 MG
  5. METHOTREXATE [Suspect]
     Dosage: 45 MG
  6. ONCASPAR [Suspect]
     Dosage: 6225 IU

REACTIONS (4)
  - DYSPNOEA [None]
  - REFUSAL OF TREATMENT BY PATIENT [None]
  - MUSCULAR WEAKNESS [None]
  - ACARODERMATITIS [None]
